FAERS Safety Report 10690138 (Version 1)
Quarter: 2015Q1

REPORT INFORMATION
  Report Type: Spontaneous
  Country: US (occurrence: None)
  Receive Date: 20150102
  Receipt Date: 20150102
  Transmission Date: 20150720
  Serious: Yes (Other)
  Sender: FDA-Public Use
  Company Number: None

PATIENT
  Age: 4 Year
  Sex: Male
  Weight: 19.5 kg

DRUGS (2)
  1. CVS PHARMACY CHILDRENS ALLERGY RELIEF [Suspect]
     Active Substance: CETIRIZINE HYDROCHLORIDE
     Indication: NASOPHARYNGITIS
     Dates: end: 20150101
  2. CVS PHARMACY CHILDRENS ALLERGY RELIEF [Suspect]
     Active Substance: CETIRIZINE HYDROCHLORIDE
     Indication: HYPERSENSITIVITY
     Dates: end: 20150101

REACTIONS (6)
  - Cough [None]
  - Headache [None]
  - Oropharyngeal pain [None]
  - Abdominal pain upper [None]
  - Vomiting [None]
  - Muscle twitching [None]

NARRATIVE: CASE EVENT DATE: 20150101
